FAERS Safety Report 21613123 (Version 1)
Quarter: 2022Q4

REPORT INFORMATION
  Report Type: Spontaneous
  Country: CN (occurrence: CN)
  Receive Date: 20221118
  Receipt Date: 20221118
  Transmission Date: 20230113
  Serious: Yes (Other)
  Sender: FDA-Public Use
  Company Number: CN-Accord-286403

PATIENT
  Age: 38 Year
  Sex: Female

DRUGS (3)
  1. CISPLATIN [Suspect]
     Active Substance: CISPLATIN
     Indication: Ovarian germ cell teratoma stage II
     Route: 042
     Dates: start: 2021
  2. ETOPOSIDE [Suspect]
     Active Substance: ETOPOSIDE
     Indication: Ovarian germ cell teratoma stage II
     Route: 042
     Dates: start: 2021
  3. BLEOMYCIN [Suspect]
     Active Substance: BLEOMYCIN SULFATE
     Indication: Ovarian germ cell teratoma stage II
     Route: 042
     Dates: start: 2021

REACTIONS (3)
  - Vomiting [Unknown]
  - Nausea [Unknown]
  - Growing teratoma syndrome [Recovering/Resolving]

NARRATIVE: CASE EVENT DATE: 20210101
